FAERS Safety Report 10401372 (Version 2)
Quarter: 2014Q3

REPORT INFORMATION
  Report Type: Spontaneous
  Country: RU (occurrence: RU)
  Receive Date: 20140822
  Receipt Date: 20140822
  Transmission Date: 20150326
  Serious: Yes (Hospitalization, Other)
  Sender: FDA-Public Use
  Company Number: RU-UCBSA-2014007961

PATIENT
  Sex: Female

DRUGS (17)
  1. KEPPRA [Suspect]
     Active Substance: LEVETIRACETAM
     Indication: EPILEPSY
     Dosage: 2500 MG, ONCE DAILY (QD)
     Route: 048
     Dates: start: 2004, end: 2006
  2. DEPAKINE [Concomitant]
     Active Substance: VALPROATE SODIUM
     Indication: EPILEPSY
     Dosage: 2500 MG, ONCE DAILY (QD)
  3. KEPPRA [Suspect]
     Active Substance: LEVETIRACETAM
     Dosage: 4000 MG, ONCE DAILY (QD)
  4. CARBAMAZEPINE. [Concomitant]
     Active Substance: CARBAMAZEPINE
     Indication: EPILEPSY
     Dosage: 600 MG, ONCE DAILY (QD)
     Dates: end: 2005
  5. PROGRAF [Concomitant]
     Active Substance: TACROLIMUS\TACROLIMUS ANHYDROUS
  6. PREDNISOLONE. [Concomitant]
     Active Substance: PREDNISOLONE
     Dosage: 80 MG, ONCE DAILY (QD)
  7. KEPPRA [Suspect]
     Active Substance: LEVETIRACETAM
     Indication: OFF LABEL USE
     Dosage: 3000 MG, ONCE DAILY (QD)
     Dates: start: 2006
  8. TOPIRAMATE. [Concomitant]
     Active Substance: TOPIRAMATE
     Indication: EPILEPSY
  9. CARBAMAZEPINE. [Concomitant]
     Active Substance: CARBAMAZEPINE
     Dosage: 1500 MG, ONCE DAILY (QD)
     Dates: start: 2005
  10. PREDNISOLONE. [Concomitant]
     Active Substance: PREDNISOLONE
     Dosage: 5 MG, ONCE DAILY (QD)
     Route: 048
  11. METHYLPREDNISOLONE [Concomitant]
     Active Substance: METHYLPREDNISOLONE
     Dosage: ACCORDING TO THE SCHEDULE 1000 MG-1000 MG- 500 MG- 500 MG- 250 MG-250 MG
  12. DEPAKINE [Concomitant]
     Active Substance: VALPROATE SODIUM
     Dosage: 1300 MG, ONCE DAILY (QD)
  13. METHYLPREDNISOLONE [Concomitant]
     Active Substance: METHYLPREDNISOLONE
     Dosage: PULSE THERPAY
  14. CLOBAZAM [Concomitant]
     Active Substance: CLOBAZAM
     Indication: EPILEPSY
     Dosage: 10 MG, ONCE DAILY (QD)
     Dates: start: 2005
  15. CLOBAZAM [Concomitant]
     Active Substance: CLOBAZAM
     Dosage: 15 MG, ONCE DAILY (QD)
     Dates: start: 2005
  16. OCTAGAM IMMUNE GLOBULIN (HUMAN) [Concomitant]
     Active Substance: HUMAN IMMUNOGLOBULIN G
     Dosage: 0.4 G/KG ONCE DAILY- 5 INFUSIONS, THEN 1 INFUSION PER MONTH ON ONGOING BASIS
     Dates: start: 2005
  17. OXCARBAZEPINE. [Concomitant]
     Active Substance: OXCARBAZEPINE
     Indication: EPILEPSY
     Dosage: 1200 MG, ONCE DAILY (QD)

REACTIONS (11)
  - Aggression [Unknown]
  - Convulsion [Recovering/Resolving]
  - Leukopenia [Unknown]
  - Mean arterial pressure increased [Unknown]
  - Overdose [Unknown]
  - Anxiety [Unknown]
  - Lymphocyte count increased [Unknown]
  - Weight increased [Unknown]
  - Oedema peripheral [Unknown]
  - Status epilepticus [Unknown]
  - Off label use [Unknown]

NARRATIVE: CASE EVENT DATE: 2004
